FAERS Safety Report 15565950 (Version 1)
Quarter: 2018Q4

REPORT INFORMATION
  Report Type: Report from Study
  Country: US (occurrence: US)
  Receive Date: 20181030
  Receipt Date: 20181030
  Transmission Date: 20190205
  Serious: No
  Sender: FDA-Public Use
  Company Number: PHEH2018US045099

PATIENT
  Sex: Male

DRUGS (1)
  1. ENTRESTO [Suspect]
     Active Substance: SACUBITRIL\VALSARTAN
     Indication: PRODUCT USED FOR UNKNOWN INDICATION
     Route: 048

REACTIONS (7)
  - Drug ineffective [Unknown]
  - Weight decreased [Unknown]
  - Hyperhidrosis [Unknown]
  - Heart rate increased [Unknown]
  - Thyroid disorder [Unknown]
  - Malaise [Unknown]
  - Fatigue [Unknown]
